FAERS Safety Report 23097870 (Version 1)
Quarter: 2023Q4

REPORT INFORMATION
  Report Type: Spontaneous
  Country: US (occurrence: US)
  Receive Date: 20231023
  Receipt Date: 20231023
  Transmission Date: 20240110
  Serious: Yes (Hospitalization)
  Sender: FDA-Public Use
  Company Number: US-STRIDES ARCOLAB LIMITED-2023SP015762

PATIENT
  Age: 78 Year
  Sex: Female

DRUGS (1)
  1. HYDRALAZINE HYDROCHLORIDE [Suspect]
     Active Substance: HYDRALAZINE HYDROCHLORIDE
     Indication: Hypertension
     Dosage: 100 MILLIGRAM, TID
     Route: 065

REACTIONS (1)
  - Anti-neutrophil cytoplasmic antibody positive vasculitis [Unknown]
